FAERS Safety Report 5150217-6 (Version None)
Quarter: 2006Q4

REPORT INFORMATION
  Report Type: 
  Country: None (occurrence: None)
  Receive Date: 20061108
  Receipt Date: 20061030
  Transmission Date: 20070319
  Serious: Yes (Death, Hospitalization)
  Sender: FDA-Public Use
  Company Number: 227570

PATIENT
  Age: 88 Year
  Sex: Female

DRUGS (9)
  1. RANIBIZUMAB (RANIBIZUMAB) PWDR + SOLVENT, INJECTION SOLN [Suspect]
     Indication: MACULAR DEGENERATION
     Dosage: INTRAVITREAL
     Dates: start: 20060418, end: 20060516
  2. LEVOTHROID [Concomitant]
  3. NORVASC [Concomitant]
  4. TOPROL-XL [Concomitant]
  5. PREDNISONE TAB [Concomitant]
  6. NEXIUM [Concomitant]
  7. MOTRIN [Concomitant]
  8. RETINAVITES (ASCORBIC ACID, COPPER, VITAMIN A, VITAMIN E, ZINC OXIDE) [Concomitant]
  9. STEROID (UNK INGREDIENTS) (STEROID NOS) [Concomitant]

REACTIONS (1)
  - HOSPITALISATION [None]
